FAERS Safety Report 11877079 (Version 2)
Quarter: 2016Q1

REPORT INFORMATION
  Report Type: Spontaneous
  Country: JP (occurrence: JP)
  Receive Date: 20151229
  Receipt Date: 20160219
  Transmission Date: 20160526
  Serious: Yes (Other)
  Sender: FDA-Public Use
  Company Number: JP-PFIZER INC-2015471887

PATIENT
  Age: 97 Year
  Sex: Female

DRUGS (4)
  1. MAGLAX [Concomitant]
     Active Substance: MAGNESIUM OXIDE
     Dosage: UNK
     Route: 048
  2. AMLODIPINE BESILATE [Concomitant]
     Active Substance: AMLODIPINE BESYLATE
     Dosage: UNK
     Route: 048
  3. BONOTEO [Concomitant]
     Active Substance: MINODRONIC ACID
     Dosage: 50 MG MONTHLY
     Route: 048
  4. TOVIAZ [Suspect]
     Active Substance: FESOTERODINE FUMARATE
     Dosage: 2 DF 1X/DAY (AFTER BREAKFAST)
     Route: 048

REACTIONS (1)
  - Urinary retention [Recovered/Resolved]
